FAERS Safety Report 6464057-9 (Version None)
Quarter: 2009Q4

REPORT INFORMATION
  Report Type: 
  Country: None (occurrence: None)
  Receive Date: 20091130
  Receipt Date: 20091130
  Transmission Date: 20100525
  Serious: No
  Sender: FDA-Public Use
  Company Number: None

PATIENT
  Sex: Male
  Weight: 71.2147 kg

DRUGS (1)
  1. CEPHALEXIN [Suspect]
     Indication: CYSTITIS
     Dosage: DAY PO
     Route: 048
     Dates: start: 20090924, end: 20091001

REACTIONS (1)
  - RASH [None]
